FAERS Safety Report 6976025-9 (Version None)
Quarter: 2010Q3

REPORT INFORMATION
  Report Type: 
  Country: None (occurrence: None)
  Receive Date: 20100910
  Receipt Date: 20100831
  Transmission Date: 20110219
  Serious: Yes (Hospitalization)
  Sender: FDA-Public Use
  Company Number: SE-SANOFI-AVENTIS-2010SA051936

PATIENT
  Sex: Female

DRUGS (36)
  1. NIFEDIPINE [Interacting]
  2. METRONIDAZOLE [Suspect]
  3. FLUOXETINE [Interacting]
  4. FLUCONAZOLE [Interacting]
     Indication: ORAL CANDIDIASIS
     Dates: start: 20000101
  5. FLUCONAZOLE [Interacting]
     Dates: start: 20080101
  6. PHENYTOIN [Interacting]
     Dates: start: 19980101
  7. PHENYTOIN [Interacting]
  8. PHENYTOIN [Interacting]
  9. ANTIINFLAMMATORY/ANTIRHEUMATIC NON-STEROIDS [Concomitant]
     Indication: POLYARTHRITIS
  10. ANTIINFLAMMATORY/ANTIRHEUMATIC NON-STEROIDS [Concomitant]
     Indication: UVEITIS
  11. CORTICOSTEROIDS [Concomitant]
     Indication: POLYARTHRITIS
  12. CORTICOSTEROIDS [Concomitant]
     Indication: UVEITIS
  13. CYCLOSPORINE [Concomitant]
  14. SULFASALAZINE [Concomitant]
  15. AZATHIOPRINE [Concomitant]
  16. METHOTREXATE [Concomitant]
  17. CYCLOPHOSPHAMIDE [Concomitant]
  18. INFLIXIMAB [Concomitant]
  19. ETANERCEPT [Concomitant]
  20. PREDNISOLONE [Concomitant]
  21. ALFACALCIDOL [Concomitant]
  22. AMPICILLIN SODIUM [Concomitant]
  23. AMOXICILLIN [Concomitant]
  24. CALCIUM CARBONATE [Concomitant]
  25. CLONIDINE [Concomitant]
  26. CITALOPRAM HYDROBROMIDE [Concomitant]
  27. FUROSEMIDE [Concomitant]
  28. CLONAZEPAM [Concomitant]
  29. ZOPICLONE [Concomitant]
  30. POTASSIUM [Concomitant]
  31. LOPERAMIDE [Concomitant]
  32. METHADONE [Concomitant]
  33. GABAPENTIN [Concomitant]
  34. PANTOPRAZOLE [Concomitant]
  35. METOCLOPRAMIDE [Concomitant]
  36. PROPIOMAZINE [Concomitant]

REACTIONS (14)
  - ANAEMIA [None]
  - ATAXIA [None]
  - COGNITIVE DISORDER [None]
  - CONFUSIONAL STATE [None]
  - DEPRESSED LEVEL OF CONSCIOUSNESS [None]
  - DRUG INTERACTION [None]
  - DRUG TOXICITY [None]
  - FATIGUE [None]
  - GAIT DISTURBANCE [None]
  - HYPOALBUMINAEMIA [None]
  - HYPOCALCAEMIA [None]
  - OVERDOSE [None]
  - SPEECH DISORDER [None]
  - VERTIGO [None]
